FAERS Safety Report 5393951-5 (Version None)
Quarter: 2007Q3

REPORT INFORMATION
  Report Type: 
  Country: None (occurrence: None)
  Receive Date: 20070723
  Receipt Date: 20070126
  Transmission Date: 20080115
  Serious: No
  Sender: FDA-Public Use
  Company Number: A0629019A

PATIENT
  Sex: Female

DRUGS (14)
  1. AVANDIA [Suspect]
     Dosage: 4MG PER DAY
     Route: 048
     Dates: start: 20060925
  2. FLOVENT [Suspect]
     Indication: CHRONIC OBSTRUCTIVE PULMONARY DISEASE
     Route: 055
     Dates: start: 20061004
  3. COMBIVENT [Suspect]
     Indication: CHRONIC OBSTRUCTIVE PULMONARY DISEASE
     Dates: start: 20061004
  4. PREDNISONE [Suspect]
     Indication: DRUG USE FOR UNKNOWN INDICATION
  5. GLYBURIDE [Concomitant]
  6. GLUCOPHAGE [Concomitant]
  7. PRINIVIL [Concomitant]
  8. TRICOR [Concomitant]
  9. ZOCOR [Concomitant]
  10. OMEPRAZOLE [Concomitant]
  11. DICYCLOMINE [Concomitant]
  12. CENTRUM [Concomitant]
  13. BIOTIN [Concomitant]
  14. FISH OIL [Concomitant]

REACTIONS (4)
  - BLOOD GLUCOSE INCREASED [None]
  - DYSPNOEA [None]
  - FEELING HOT [None]
  - HYPERHIDROSIS [None]
